FAERS Safety Report 7911601-8 (Version None)
Quarter: 2011Q4

REPORT INFORMATION
  Report Type: 
  Country: None (occurrence: None)
  Receive Date: 20111114
  Receipt Date: 20111104
  Transmission Date: 20120403
  Serious: Yes (Other)
  Sender: FDA-Public Use
  Company Number: IT-AMGEN-ITASP2011058282

PATIENT
  Age: 54 Year
  Sex: Female

DRUGS (3)
  1. ENBREL [Suspect]
     Indication: ANKYLOSING SPONDYLITIS
     Dosage: 50 MG, WEEKLY
     Route: 058
     Dates: start: 20110929, end: 20111011
  2. LEVOTHYROXINE SODIUM [Concomitant]
     Dosage: 75 MG, UNK
     Route: 048
  3. FOLINA                             /00024201/ [Concomitant]
     Indication: PRODUCT USED FOR UNKNOWN INDICATION
     Dosage: UNK UNK, UNK

REACTIONS (5)
  - IMMUNOSUPPRESSION [None]
  - GENERALISED ERYTHEMA [None]
  - HERPES ZOSTER [None]
  - INJECTION SITE ERYTHEMA [None]
  - SWELLING FACE [None]
